FAERS Safety Report 13210843 (Version 1)
Quarter: 2017Q1

REPORT INFORMATION
  Report Type: Spontaneous
  Country: US (occurrence: US)
  Receive Date: 20170209
  Receipt Date: 20170209
  Transmission Date: 20170428
  Serious: No
  Sender: FDA-Public Use
  Company Number: None

PATIENT
  Age: 61 Year
  Sex: Female
  Weight: 76.5 kg

DRUGS (6)
  1. VITAMIN D3 [Concomitant]
     Active Substance: CHOLECALCIFEROL
  2. PINDOLOL. [Concomitant]
     Active Substance: PINDOLOL
  3. ASA [Concomitant]
     Active Substance: ASPIRIN
  4. YUVAFEM [Suspect]
     Active Substance: ESTRADIOL HEMIHYDRATE
     Indication: ATROPHIC VULVOVAGINITIS
     Dosage: ?          OTHER STRENGTH:MCG;QUANTITY:1 SUPPOSITORY(IES);OTHER FREQUENCY:TWICE WEEKLY;?
     Route: 067
     Dates: start: 20161126
  5. SYNTHROID [Concomitant]
     Active Substance: LEVOTHYROXINE SODIUM
  6. CALCIUM [Concomitant]
     Active Substance: CALCIUM

REACTIONS (2)
  - Device physical property issue [None]
  - Vaginal haemorrhage [None]

NARRATIVE: CASE EVENT DATE: 20161228
